FAERS Safety Report 4592865-8 (Version None)
Quarter: 2005Q1

REPORT INFORMATION
  Report Type: 
  Country: None (occurrence: None)
  Receive Date: 20050228
  Receipt Date: 20050217
  Transmission Date: 20050727
  Serious: Yes (Hospitalization)
  Sender: FDA-Public Use
  Company Number: US-AMGEN-US114853

PATIENT
  Age: 34 Year
  Sex: Female

DRUGS (5)
  1. SENSIPAR [Suspect]
     Indication: HYPERPARATHYROIDISM SECONDARY
     Route: 048
     Dates: start: 20041101, end: 20050201
  2. SODIUM BICARBONATE [Concomitant]
     Route: 048
  3. PHOSLO [Concomitant]
  4. LOPRESSOR [Concomitant]
  5. COUMADIN [Concomitant]

REACTIONS (5)
  - DYSPNOEA [None]
  - HAEMODIALYSIS [None]
  - HYPOTENSION [None]
  - METABOLIC ALKALOSIS [None]
  - RESPIRATORY ALKALOSIS [None]
